FAERS Safety Report 4870135-8 (Version None)
Quarter: 2005Q4

REPORT INFORMATION
  Report Type: 
  Country: None (occurrence: None)
  Receive Date: 20051229
  Receipt Date: 20051229
  Transmission Date: 20060501
  Serious: Yes (Other)
  Sender: FDA-Public Use
  Company Number: None

PATIENT
  Age: 43 Year
  Sex: Male
  Weight: 85.6 kg

DRUGS (2)
  1. ERLOTINIB   150 MG [Suspect]
     Indication: NON-SMALL CELL LUNG CANCER
     Dosage: PO  QD
     Route: 048
     Dates: start: 20051129
  2. EFFEXOR [Concomitant]

REACTIONS (1)
  - LIBIDO DECREASED [None]
